FAERS Safety Report 10673905 (Version 5)
Quarter: 2015Q3

REPORT INFORMATION
  Report Type: Report from Study
  Country: PL (occurrence: PL)
  Receive Date: 20141224
  Receipt Date: 20150804
  Transmission Date: 20151125
  Serious: Yes (Hospitalization)
  Sender: FDA-Public Use
  Company Number: PL-CELGENE-POL-2014121327

PATIENT
  Age: 46 Year
  Sex: Male
  Weight: 72 kg

DRUGS (2)
  1. TIMONACIC [Concomitant]
     Active Substance: TIMONACIC
     Indication: PROPHYLAXIS
     Route: 048
     Dates: start: 20120201
  2. CC-10004 [Suspect]
     Active Substance: APREMILAST
     Indication: PSORIATIC ARTHROPATHY
     Route: 048

REACTIONS (1)
  - Lymphadenopathy mediastinal [Not Recovered/Not Resolved]

NARRATIVE: CASE EVENT DATE: 20140306
